FAERS Safety Report 7642016-8 (Version None)
Quarter: 2011Q3

REPORT INFORMATION
  Report Type: 
  Country: None (occurrence: None)
  Receive Date: 20110728
  Receipt Date: 20110725
  Transmission Date: 20111222
  Serious: Yes (Hospitalization, Other)
  Sender: FDA-Public Use
  Company Number: VE-PFIZER INC-2011127173

PATIENT
  Age: 76 Year
  Sex: Female

DRUGS (5)
  1. METFORMIN HYDROCHLORIDE/SITAGLIPTIN [Concomitant]
     Indication: DIABETES MELLITUS INADEQUATE CONTROL
     Dosage: UNK
     Route: 048
  2. LIPITOR [Suspect]
     Indication: HYPERCHOLESTEROLAEMIA
     Dosage: 80 MG, 1X/DAY
     Route: 048
  3. DAFLON [Concomitant]
     Route: 048
  4. LOVAZA [Concomitant]
     Route: 048
  5. GLUCOSAMINE [Concomitant]
     Route: 048

REACTIONS (2)
  - DIVERTICULITIS [None]
  - DERMATITIS ALLERGIC [None]
